FAERS Safety Report 23598862 (Version 2)
Quarter: 2024Q2

REPORT INFORMATION
  Report Type: Spontaneous
  Country: FR (occurrence: FR)
  Receive Date: 20240306
  Receipt Date: 20240406
  Transmission Date: 20240716
  Serious: No
  Sender: FDA-Public Use
  Company Number: FR-JNJFOC-20240238874

PATIENT
  Age: 55 Year
  Sex: Female

DRUGS (1)
  1. SIMPONI [Suspect]
     Active Substance: GOLIMUMAB
     Indication: Colitis ulcerative
     Route: 058
     Dates: start: 202212

REACTIONS (2)
  - Product dose omission issue [Unknown]
  - Device deployment issue [Unknown]

NARRATIVE: CASE EVENT DATE: 20240209
